FAERS Safety Report 7017875-2 (Version None)
Quarter: 2010Q3

REPORT INFORMATION
  Report Type: 
  Country: None (occurrence: None)
  Receive Date: 20100927
  Receipt Date: 20100927
  Transmission Date: 20110219
  Serious: Yes (Hospitalization)
  Sender: FDA-Public Use
  Company Number: None

PATIENT
  Age: 55 Year
  Sex: Male
  Weight: 94 kg

DRUGS (3)
  1. TRAZODONE HCL [Suspect]
     Indication: INSOMNIA
     Dosage: 100 MG HS PO
     Route: 048
     Dates: start: 20080926, end: 20100913
  2. TRAZODONE HCL [Suspect]
     Indication: POST-TRAUMATIC STRESS DISORDER
     Dosage: 100 MG HS PO
     Route: 048
     Dates: start: 20080926, end: 20100913
  3. VARDENAFIL HYDROCHLORIDE (LEVITRA) [Suspect]
     Indication: ERECTILE DYSFUNCTION
     Dosage: 10 MG PRN PO
     Route: 048
     Dates: start: 20080728, end: 20100914

REACTIONS (2)
  - DRUG ABUSE [None]
  - PRIAPISM [None]
